FAERS Safety Report 26043053 (Version 1)
Quarter: 2025Q4

REPORT INFORMATION
  Report Type: Spontaneous
  Country: US (occurrence: US)
  Receive Date: 20251113
  Receipt Date: 20251113
  Transmission Date: 20260117
  Serious: No
  Sender: ANI
  Company Number: US-ANIPHARMA-2025-US-048597

PATIENT
  Sex: Female

DRUGS (23)
  1. CORTICOTROPIN [Suspect]
     Active Substance: CORTICOTROPIN
     Indication: Gout
     Dosage: INJECT 40 UNITS (0.5 ML) SUBCUTANEOUSLY THREE TIMES WEEKLY
     Route: 058
  2. LISINOPRIL [Concomitant]
     Active Substance: LISINOPRIL
  3. LANSOPRAZOLE [Concomitant]
     Active Substance: LANSOPRAZOLE
  4. METHENAMINE HIPP [Concomitant]
  5. TYLENOL ATHRITIS [Concomitant]
  6. ASPIRIN [Concomitant]
     Active Substance: ASPIRIN
  7. VITAMIN C [Concomitant]
     Active Substance: ASCORBIC ACID
  8. KRYSTEXXA [Concomitant]
     Active Substance: PEGLOTICASE
  9. CALCIUM CARBONATE\ERGOCALCIFEROL\RETINOL [Concomitant]
     Active Substance: CALCIUM CARBONATE\ERGOCALCIFEROL\RETINOL
  10. LEFLUNOMIDE [Concomitant]
     Active Substance: LEFLUNOMIDE
  11. SODIUM BIRCARB [Concomitant]
  12. BETADINE [Concomitant]
     Active Substance: POVIDONE-IODINE
  13. FARXIGA [Concomitant]
     Active Substance: DAPAGLIFLOZIN PROPANEDIOL
  14. KRILL OIL [Concomitant]
     Active Substance: DIETARY SUPPLEMENT\KRILL OIL
  15. HUMIRA [Concomitant]
     Active Substance: ADALIMUMAB
  16. LASIX [Concomitant]
     Active Substance: FUROSEMIDE
  17. IRON [Concomitant]
     Active Substance: IRON
  18. MAGNESIUM [Concomitant]
     Active Substance: MAGNESIUM
  19. VITAMINS [Concomitant]
     Active Substance: VITAMINS
  20. OXYBUTNIN ER [Concomitant]
  21. OZEMPIC [Concomitant]
     Active Substance: SEMAGLUTIDE
  22. TRIAMCINOLONE [Concomitant]
     Active Substance: TRIAMCINOLONE
  23. CITALOPRAM [Concomitant]
     Active Substance: CITALOPRAM

REACTIONS (3)
  - Product dose omission issue [Unknown]
  - Hunger [Unknown]
  - Feeling jittery [Unknown]
